FAERS Safety Report 11880682 (Version 1)
Quarter: 2015Q4

REPORT INFORMATION
  Report Type: Spontaneous
  Country: DE (occurrence: DE)
  Receive Date: 20151230
  Receipt Date: 20151230
  Transmission Date: 20160305
  Serious: Yes (Life-Threatening)
  Sender: FDA-Public Use
  Company Number: DE-OTSUKA-008918

PATIENT
  Age: 70 Year
  Sex: Male
  Weight: 87 kg

DRUGS (6)
  1. CYCLOSPORIN A [Suspect]
     Active Substance: CYCLOSPORINE
     Indication: IMMUNOSUPPRESSION
     Dosage: 3 MG/KG, QD (1/DAY)
     Route: 042
     Dates: start: 20100203, end: 20100205
  2. BUSULFAN [Suspect]
     Active Substance: BUSULFAN
     Dosage: 0.30 MG, UNK
     Route: 042
     Dates: start: 20100131, end: 20100201
  3. MTX [Suspect]
     Active Substance: METHOTREXATE SODIUM
     Indication: IMMUNOSUPPRESSION
     Dosage: 17 MG/M2, QD (1/DAY)
     Route: 042
  4. BUSULFAN [Suspect]
     Active Substance: BUSULFAN
     Indication: STEM CELL TRANSPLANT
     Dosage: 0.8 MG/KG, QID (4/DAY)
     Route: 042
     Dates: start: 20100131, end: 20100201
  5. ATG [Suspect]
     Active Substance: LAPINE T-LYMPHOCYTE IMMUNE GLOBULIN
     Indication: BONE MARROW CONDITIONING REGIMEN
     Dosage: 10 MG/KG, QD (1/DAY)
     Route: 042
     Dates: start: 20100131, end: 20100202
  6. FLUDARABINE [Suspect]
     Active Substance: FLUDARABINE PHOSPHATE
     Indication: STEM CELL TRANSPLANT
     Dosage: 30 MG/M2, UNK
     Route: 042
     Dates: start: 20100129, end: 20100201

REACTIONS (4)
  - Hyperbilirubinaemia [Not Recovered/Not Resolved]
  - Renal failure [Recovering/Resolving]
  - Liver disorder [Not Recovered/Not Resolved]
  - Hypersensitivity [Unknown]

NARRATIVE: CASE EVENT DATE: 20100131
